FAERS Safety Report 5874012-5 (Version None)
Quarter: 2008Q3

REPORT INFORMATION
  Report Type: 
  Country: None (occurrence: None)
  Receive Date: 20080908
  Receipt Date: 20080826
  Transmission Date: 20090109
  Serious: Yes (Other)
  Sender: FDA-Public Use
  Company Number: SE-ELI_LILLY_AND_COMPANY-SE200809000091

PATIENT
  Sex: Male

DRUGS (1)
  1. FONTEX [Suspect]

REACTIONS (1)
  - PULMONARY VASCULITIS [None]
